FAERS Safety Report 17911526 (Version 1)
Quarter: 2020Q2

REPORT INFORMATION
  Report Type: Spontaneous
  Country: US (occurrence: US)
  Receive Date: 20200617
  Receipt Date: 20200617
  Transmission Date: 20200714
  Serious: Yes (Other)
  Sender: FDA-Public Use
  Company Number: None

PATIENT
  Age: 77 Year
  Sex: Female
  Weight: 80 kg

DRUGS (18)
  1. REMDESIVIR, 0.7MG/ML [Suspect]
     Active Substance: REMDESIVIR
     Indication: COVID-19
     Route: 041
     Dates: start: 20200607, end: 20200608
  2. ATORVASTATIN [Concomitant]
     Active Substance: ATORVASTATIN
  3. HYDRALAZINE [Concomitant]
     Active Substance: HYDRALAZINE HYDROCHLORIDE
  4. FENTANYL DRIP [Concomitant]
  5. FAMOTIDINE. [Concomitant]
     Active Substance: FAMOTIDINE
  6. LISPRO INSULIN [Concomitant]
     Active Substance: INSULIN LISPRO
  7. NOREPINEPHRINE. [Concomitant]
     Active Substance: NOREPINEPHRINE
  8. DOCUSATE [Concomitant]
     Active Substance: DOCUSATE
  9. REGULAR INSULIN [Concomitant]
     Active Substance: INSULIN NOS
  10. SOLU-MEDROL [Concomitant]
     Active Substance: METHYLPREDNISOLONE SODIUM SUCCINATE
  11. 0.5% NORMAL SALINE [Concomitant]
  12. ROCURONIUM [Concomitant]
     Active Substance: ROCURONIUM BROMIDE
  13. ENOXAPARIN [Concomitant]
     Active Substance: ENOXAPARIN
  14. LANTUS [Concomitant]
     Active Substance: INSULIN GLARGINE
  15. PANTOPRAZOLE [Concomitant]
     Active Substance: PANTOPRAZOLE
  16. SODIUM BICARBONATE. [Concomitant]
     Active Substance: SODIUM BICARBONATE
  17. D5 WITH SODIUM BICARBONATE [Concomitant]
  18. MIDAZOLAM. [Concomitant]
     Active Substance: MIDAZOLAM

REACTIONS (2)
  - Alanine aminotransferase increased [None]
  - Acute kidney injury [None]

NARRATIVE: CASE EVENT DATE: 20200608
